FAERS Safety Report 16539232 (Version 3)
Quarter: 2020Q1

REPORT INFORMATION
  Report Type: Report from Study
  Country: US (occurrence: US)
  Receive Date: 20190708
  Receipt Date: 20200319
  Transmission Date: 20200409
  Serious: Yes (Other)
  Sender: FDA-Public Use
  Company Number: PHHY2019US152360

PATIENT
  Age: 21 Year
  Sex: Male

DRUGS (7)
  1. CYCLOPHOSPHAMIDE. [Concomitant]
     Active Substance: CYCLOPHOSPHAMIDE
     Indication: CHEMOTHERAPY
     Route: 065
  2. FLUDARABINE [Concomitant]
     Active Substance: FLUDARABINE PHOSPHATE
     Indication: CHEMOTHERAPY
     Route: 065
  3. BLINATUMOMAB [Concomitant]
     Active Substance: BLINATUMOMAB
     Indication: CHEMOTHERAPY
     Dosage: UNK
     Route: 065
  4. MABTHERA [Concomitant]
     Active Substance: RITUXIMAB
     Indication: CHEMOTHERAPY
     Route: 065
  5. RITUXIMAB. [Concomitant]
     Active Substance: RITUXIMAB
     Indication: CHEMOTHERAPY
     Route: 065
  6. KYMRIAH [Suspect]
     Active Substance: TISAGENLECLEUCEL
     Indication: LYMPHOCYTIC LEUKAEMIA
     Dosage: UNK, ONCE/SINGLE
     Route: 041
     Dates: start: 2018
  7. RITUXAN [Concomitant]
     Active Substance: RITUXIMAB
     Indication: CHEMOTHERAPY
     Route: 065

REACTIONS (9)
  - Human metapneumovirus test positive [Unknown]
  - B-cell type acute leukaemia [Unknown]
  - Malignant neoplasm progression [Unknown]
  - Haemoglobin decreased [Unknown]
  - Hypotension [Unknown]
  - Sinusitis [Unknown]
  - Cytokine release syndrome [Recovered/Resolved]
  - Haematocrit decreased [Unknown]
  - Viral upper respiratory tract infection [Unknown]
